FAERS Safety Report 6736681-7 (Version None)
Quarter: 2010Q2

REPORT INFORMATION
  Report Type: 
  Country: None (occurrence: None)
  Receive Date: 20100521
  Receipt Date: 20100510
  Transmission Date: 20101027
  Serious: Yes (Hospitalization, Other)
  Sender: FDA-Public Use
  Company Number: PHHY2010TW08366

PATIENT
  Sex: Male
  Weight: 64 kg

DRUGS (1)
  1. NEORAL [Suspect]
     Indication: HEPATIC CIRRHOSIS
     Dosage: 350 MG/DAY
     Route: 048
     Dates: start: 20100113, end: 20100206

REACTIONS (8)
  - ASCITES [None]
  - GAMMA-GLUTAMYLTRANSFERASE INCREASED [None]
  - HEPATIC ENZYME INCREASED [None]
  - HEPATIC VEIN STENOSIS [None]
  - HEPATOMEGALY [None]
  - LIVER TRANSPLANT REJECTION [None]
  - PORTAL ANASTOMOSIS [None]
  - TYPE IV HYPERSENSITIVITY REACTION [None]
